FAERS Safety Report 8522359-6 (Version None)
Quarter: 2012Q3

REPORT INFORMATION
  Report Type: 
  Country: None (occurrence: None)
  Receive Date: 20120719
  Receipt Date: 20120711
  Transmission Date: 20120928
  Serious: Yes (Hospitalization, Other)
  Sender: FDA-Public Use
  Company Number: US-ABBOTT-12P-163-0955512-00

PATIENT
  Sex: Female
  Weight: 104.42 kg

DRUGS (2)
  1. UNKNOWN PAIN MEDICATION [Concomitant]
     Indication: PRODUCT USED FOR UNKNOWN INDICATION
  2. HUMIRA [Suspect]
     Indication: ANKYLOSING SPONDYLITIS
     Dates: start: 20110801

REACTIONS (3)
  - MIGRAINE [None]
  - LIVER INJURY [None]
  - CHOLELITHIASIS [None]
